FAERS Safety Report 16678717 (Version 1)
Quarter: 2019Q3

REPORT INFORMATION
  Report Type: Spontaneous
  Country: US (occurrence: US)
  Receive Date: 20190806
  Receipt Date: 20190806
  Transmission Date: 20191004
  Serious: No
  Sender: FDA-Public Use
  Company Number: None

PATIENT
  Age: 48 Year
  Sex: Female
  Weight: 58.5 kg

DRUGS (5)
  1. MINERAL DIETARY SUPPLEMENT B-COMPLEX [Concomitant]
  2. TRETINOIN MICRO GEL [Concomitant]
  3. SPIRONOLACTONE TAB 50MG [Suspect]
     Active Substance: SPIRONOLACTONE
     Indication: ACNE
     Dosage: ?          QUANTITY:1 TABLET(S);?
     Route: 048
     Dates: start: 20190128, end: 20190221
  4. CLINDAMYCIN/BENZOYL GEL [Concomitant]
  5. DAILY MULTI-VITAMIN [Concomitant]
     Active Substance: VITAMINS

REACTIONS (4)
  - Drug hypersensitivity [None]
  - Hypersensitivity [None]
  - Angioedema [None]
  - Off label use [None]

NARRATIVE: CASE EVENT DATE: 20190804
